FAERS Safety Report 21129095 (Version 2)
Quarter: 2022Q3

REPORT INFORMATION
  Report Type: Spontaneous
  Country: CA (occurrence: CA)
  Receive Date: 20220725
  Receipt Date: 20220831
  Transmission Date: 20221026
  Serious: Yes (Hospitalization, Other)
  Sender: FDA-Public Use
  Company Number: CA-PFIZER INC-202201000400

PATIENT
  Age: 33 Year
  Sex: Female

DRUGS (5)
  1. METHOTREXATE SODIUM [Suspect]
     Active Substance: METHOTREXATE SODIUM
     Indication: Anti-neutrophil cytoplasmic antibody positive vasculitis
     Dosage: 25 MG, WEEKLY
     Route: 048
     Dates: start: 2011
  2. METHOTREXATE SODIUM [Suspect]
     Active Substance: METHOTREXATE SODIUM
     Dosage: UNK
     Dates: start: 2022
  3. IMURAN [Concomitant]
     Active Substance: AZATHIOPRINE
     Dosage: UNK
  4. PLAQUENIL [Concomitant]
     Active Substance: HYDROXYCHLOROQUINE SULFATE
     Dosage: UNK
  5. PREDNISONE [Concomitant]
     Active Substance: PREDNISONE
     Dosage: UNK

REACTIONS (8)
  - Toxic shock syndrome streptococcal [Recovered/Resolved]
  - Anti-neutrophil cytoplasmic antibody positive vasculitis [Unknown]
  - Toxic shock syndrome [Unknown]
  - Drug ineffective [Unknown]
  - Blood urine present [Unknown]
  - Pleurisy [Unknown]
  - Cyst [Unknown]
  - Dermatitis psoriasiform [Unknown]

NARRATIVE: CASE EVENT DATE: 20160101
